FAERS Safety Report 4928359-7 (Version None)
Quarter: 2006Q1

REPORT INFORMATION
  Report Type: 
  Country: None (occurrence: None)
  Receive Date: 20060223
  Receipt Date: 20060214
  Transmission Date: 20060701
  Serious: Yes (Death)
  Sender: FDA-Public Use
  Company Number: 163-20785-06010595

PATIENT
  Age: 75 Year
  Sex: Female

DRUGS (4)
  1. THALOMID [Suspect]
     Indication: RENAL CELL CARCINOMA STAGE IV
     Dosage: 100  MG, QHS, ORAL
     Route: 048
     Dates: start: 20051214, end: 20060123
  2. RADIATION [Suspect]
     Indication: PULMONARY MASS
     Dosage: 30 GY
  3. PREDNISONE TAB [Concomitant]
  4. CEFTIN [Concomitant]

REACTIONS (3)
  - CHRONIC OBSTRUCTIVE PULMONARY DISEASE [None]
  - CONDITION AGGRAVATED [None]
  - RADIATION PNEUMONITIS [None]
